FAERS Safety Report 9222020 (Version 2)
Quarter: 2013Q4

REPORT INFORMATION
  Report Type: Spontaneous
  Country: US (occurrence: US)
  Receive Date: 20130410
  Receipt Date: 20131008
  Transmission Date: 20140711
  Serious: No
  Sender: FDA-Public Use
  Company Number: US-PFIZER INC-2013112929

PATIENT
  Sex: Female

DRUGS (4)
  1. XELJANZ [Suspect]
     Indication: RHEUMATOID ARTHRITIS
     Dosage: UNK
     Dates: start: 201301
  2. XELJANZ [Suspect]
     Dosage: 5 MG, UNK
  3. PREDNISONE [Suspect]
     Indication: RHEUMATOID ARTHRITIS
     Dosage: UNK
  4. TRAMADOL HCL [Suspect]
     Indication: PAIN
     Dosage: UNK

REACTIONS (1)
  - Drug ineffective [Unknown]
